FAERS Safety Report 5487060-4 (Version None)
Quarter: 2007Q4

REPORT INFORMATION
  Report Type: 
  Country: None (occurrence: None)
  Receive Date: 20071016
  Receipt Date: 20071003
  Transmission Date: 20080405
  Serious: Yes (Hospitalization)
  Sender: FDA-Public Use
  Company Number: CH-ELI_LILLY_AND_COMPANY-CH200709000570

PATIENT
  Age: 77 Year
  Sex: Male

DRUGS (6)
  1. ZYPREXA [Suspect]
     Indication: ABNORMAL BEHAVIOUR
     Dosage: 5 MG, DAILY (1/D)
     Route: 048
     Dates: start: 20070814, end: 20070820
  2. PANTOPRAZOLE SODIUM [Concomitant]
     Indication: GASTRITIS
     Dosage: 40 MG, DAILY (1/D)
     Route: 048
  3. BECOZYM [Concomitant]
     Indication: ALCOHOLISM
     Dosage: 100 MG, DAILY (1/D)
     Route: 048
  4. BENERVA [Concomitant]
     Indication: ALCOHOLISM
     Dosage: 300 MG, DAILY (1/D)
     Route: 048
  5. TEGRETOL [Concomitant]
     Indication: AGGRESSION
     Dosage: 1000 MG, DAILY (1/D)
     Route: 048
  6. FERRUM HAUSMANN [Concomitant]
     Indication: ANAEMIA
     Dosage: 300 MG, DAILY (1/D)
     Route: 048

REACTIONS (2)
  - AGGRESSION [None]
  - THROMBOCYTOPENIA [None]
